FAERS Safety Report 25920820 (Version 1)
Quarter: 2025Q4

REPORT INFORMATION
  Report Type: Spontaneous
  Country: EU (occurrence: EU)
  Receive Date: 20251014
  Receipt Date: 20251014
  Transmission Date: 20260117
  Serious: Yes (Other)
  Sender: MYLAN
  Company Number: None

PATIENT
  Age: 37 Year
  Sex: Male

DRUGS (20)
  1. ZOLPIDEM [Suspect]
     Active Substance: ZOLPIDEM TARTRATE
     Indication: Product used for unknown indication
     Dosage: 40 MILLIGRAM
     Dates: start: 20250529, end: 20250530
  2. ZOLPIDEM [Suspect]
     Active Substance: ZOLPIDEM TARTRATE
     Dosage: 40 MILLIGRAM
     Route: 048
     Dates: start: 20250529, end: 20250530
  3. ZOLPIDEM [Suspect]
     Active Substance: ZOLPIDEM TARTRATE
     Dosage: 40 MILLIGRAM
     Route: 048
     Dates: start: 20250529, end: 20250530
  4. ZOLPIDEM [Suspect]
     Active Substance: ZOLPIDEM TARTRATE
     Dosage: 40 MILLIGRAM
     Dates: start: 20250529, end: 20250530
  5. OXAZEPAM [Suspect]
     Active Substance: OXAZEPAM
     Indication: Product used for unknown indication
     Dosage: 450 MILLIGRAM (SCORED TABLET)
     Dates: start: 20250529, end: 20250530
  6. OXAZEPAM [Suspect]
     Active Substance: OXAZEPAM
     Dosage: 450 MILLIGRAM (SCORED TABLET)
     Route: 048
     Dates: start: 20250529, end: 20250530
  7. OXAZEPAM [Suspect]
     Active Substance: OXAZEPAM
     Dosage: 450 MILLIGRAM (SCORED TABLET)
     Route: 048
     Dates: start: 20250529, end: 20250530
  8. OXAZEPAM [Suspect]
     Active Substance: OXAZEPAM
     Dosage: 450 MILLIGRAM (SCORED TABLET)
     Dates: start: 20250529, end: 20250530
  9. METHADONE HYDROCHLORIDE [Suspect]
     Active Substance: METHADONE HYDROCHLORIDE
     Indication: Product used for unknown indication
     Dosage: 40 MILLIGRAM, BID (USUAL TREATMENT: METHADONE SYRUP 40MG MORNING AND EVENING)
     Route: 048
     Dates: start: 2023
  10. METHADONE HYDROCHLORIDE [Suspect]
     Active Substance: METHADONE HYDROCHLORIDE
     Dosage: 40 MILLIGRAM, BID (USUAL TREATMENT: METHADONE SYRUP 40MG MORNING AND EVENING)
     Dates: start: 2023
  11. METHADONE HYDROCHLORIDE [Suspect]
     Active Substance: METHADONE HYDROCHLORIDE
     Dosage: 40 MILLIGRAM, BID (USUAL TREATMENT: METHADONE SYRUP 40MG MORNING AND EVENING)
     Dates: start: 2023
  12. METHADONE HYDROCHLORIDE [Suspect]
     Active Substance: METHADONE HYDROCHLORIDE
     Dosage: 40 MILLIGRAM, BID (USUAL TREATMENT: METHADONE SYRUP 40MG MORNING AND EVENING)
     Route: 048
     Dates: start: 2023
  13. METHADONE HYDROCHLORIDE [Suspect]
     Active Substance: METHADONE HYDROCHLORIDE
     Dosage: 160 MILLIGRAM (SYRUP IN SINGLE-DOSE CONTAINER)
     Route: 048
     Dates: start: 20250529, end: 20250530
  14. METHADONE HYDROCHLORIDE [Suspect]
     Active Substance: METHADONE HYDROCHLORIDE
     Dosage: 160 MILLIGRAM (SYRUP IN SINGLE-DOSE CONTAINER)
     Dates: start: 20250529, end: 20250530
  15. METHADONE HYDROCHLORIDE [Suspect]
     Active Substance: METHADONE HYDROCHLORIDE
     Dosage: 160 MILLIGRAM (SYRUP IN SINGLE-DOSE CONTAINER)
     Dates: start: 20250529, end: 20250530
  16. METHADONE HYDROCHLORIDE [Suspect]
     Active Substance: METHADONE HYDROCHLORIDE
     Dosage: 160 MILLIGRAM (SYRUP IN SINGLE-DOSE CONTAINER)
     Route: 048
     Dates: start: 20250529, end: 20250530
  17. CANNABIS SATIVA SUBSP. INDICA TOP [Suspect]
     Active Substance: CANNABIS SATIVA SUBSP. INDICA TOP
     Indication: Product used for unknown indication
     Dosage: SOME JOINTS, INHALED
     Dates: start: 20250529, end: 20250530
  18. CANNABIS SATIVA SUBSP. INDICA TOP [Suspect]
     Active Substance: CANNABIS SATIVA SUBSP. INDICA TOP
     Dosage: SOME JOINTS, INHALED
     Route: 055
     Dates: start: 20250529, end: 20250530
  19. CANNABIS SATIVA SUBSP. INDICA TOP [Suspect]
     Active Substance: CANNABIS SATIVA SUBSP. INDICA TOP
     Dosage: SOME JOINTS, INHALED
     Route: 055
     Dates: start: 20250529, end: 20250530
  20. CANNABIS SATIVA SUBSP. INDICA TOP [Suspect]
     Active Substance: CANNABIS SATIVA SUBSP. INDICA TOP
     Dosage: SOME JOINTS, INHALED
     Dates: start: 20250529, end: 20250530

REACTIONS (4)
  - Drug use disorder [Recovering/Resolving]
  - Substance use disorder [Unknown]
  - Constipation [Unknown]
  - Somnolence [Unknown]

NARRATIVE: CASE EVENT DATE: 20250529
